FAERS Safety Report 6212149-1 (Version None)
Quarter: 2009Q2

REPORT INFORMATION
  Report Type: 
  Country: None (occurrence: None)
  Receive Date: 20090602
  Receipt Date: 20090601
  Transmission Date: 20091009
  Serious: Yes (Hospitalization)
  Sender: FDA-Public Use
  Company Number: US-ASTRAZENECA-2009UW13834

PATIENT
  Age: 74 Year
  Sex: Female

DRUGS (6)
  1. CRESTOR [Suspect]
     Route: 048
     Dates: start: 20090101
  2. PAVALIN [Concomitant]
  3. METROPHIL [Concomitant]
  4. LIPONTIL [Concomitant]
  5. LEXAPRO [Concomitant]
  6. ASPIRIN [Concomitant]

REACTIONS (1)
  - ANGINA PECTORIS [None]
